FAERS Safety Report 21128053 (Version 1)
Quarter: 2022Q3

REPORT INFORMATION
  Report Type: Spontaneous
  Country: US (occurrence: US)
  Receive Date: 20220725
  Receipt Date: 20220725
  Transmission Date: 20221026
  Serious: No
  Sender: FDA-Public Use
  Company Number: US-ABBVIE-22K-163-4427269-00

PATIENT
  Age: 53 Year
  Sex: Female
  Weight: 68.100 kg

DRUGS (4)
  1. SYNTHROID [Suspect]
     Active Substance: LEVOTHYROXINE SODIUM
     Indication: Hypothyroidism
     Dosage: 125 MCG 1/2 MONDAY-FRIDAY, 1 WHOLE TABLET SATURDAY-SUNDAY
     Route: 048
  2. PFIZER-BIONTECH COVID-19 VACCINE [Concomitant]
     Active Substance: TOZINAMERAN
     Indication: COVID-19 immunisation
     Dosage: PFIZER
     Route: 030
     Dates: start: 2021, end: 2021
  3. PFIZER-BIONTECH COVID-19 VACCINE [Concomitant]
     Active Substance: TOZINAMERAN
     Dosage: PFIZER
     Route: 030
     Dates: start: 2021, end: 2021
  4. PFIZER-BIONTECH COVID-19 VACCINE [Concomitant]
     Active Substance: TOZINAMERAN
     Dosage: PFIZER
     Route: 030
     Dates: start: 2021, end: 2021

REACTIONS (2)
  - Medication error [Not Recovered/Not Resolved]
  - Product colour issue [Not Recovered/Not Resolved]

NARRATIVE: CASE EVENT DATE: 20220508
